FAERS Safety Report 15209194 (Version 2)
Quarter: 2018Q3

REPORT INFORMATION
  Report Type: Spontaneous
  Country: US (occurrence: US)
  Receive Date: 20180727
  Receipt Date: 20180904
  Transmission Date: 20181010
  Serious: No
  Sender: FDA-Public Use
  Company Number: US-ASTRAZENECA-2017SE72328

PATIENT
  Age: 28357 Day
  Sex: Male
  Weight: 81.6 kg

DRUGS (2)
  1. PULMICORT FLEXHALER [Suspect]
     Active Substance: BUDESONIDE
     Indication: LUNG DISORDER
     Dosage: 180MCG, 1 PUFF TWICE A DAY
     Route: 055
     Dates: start: 20170620
  2. PULMICORT FLEXHALER [Suspect]
     Active Substance: BUDESONIDE
     Indication: DYSPNOEA
     Dosage: 180MCG, 1 PUFF TWICE A DAY
     Route: 055
     Dates: start: 20170620

REACTIONS (9)
  - Drug dose omission [Unknown]
  - Chronic obstructive pulmonary disease [Unknown]
  - Product use in unapproved indication [Unknown]
  - Device issue [Unknown]
  - Wrong technique in product usage process [Unknown]
  - Memory impairment [Unknown]
  - Off label use [Unknown]
  - Intentional device misuse [Unknown]
  - Visual impairment [Unknown]

NARRATIVE: CASE EVENT DATE: 20170620
